FAERS Safety Report 4932857-X (Version None)
Quarter: 2006Q1

REPORT INFORMATION
  Report Type: 
  Country: None (occurrence: None)
  Receive Date: 20060301
  Receipt Date: 20060301
  Transmission Date: 20060701
  Serious: Yes (Life-Threatening, Hospitalization, Disabling, Other)
  Sender: FDA-Public Use
  Company Number: None

PATIENT
  Sex: Female
  Weight: 93.441 kg

DRUGS (1)
  1. ORTHO EVRA [Suspect]
     Indication: METRORRHAGIA
     Dosage: 1 PATCH PER WEEK TRANSDERMAL
     Route: 062
     Dates: start: 20050401, end: 20050716

REACTIONS (12)
  - ABASIA [None]
  - CHEST PAIN [None]
  - DYSPNOEA [None]
  - EMBOLISM [None]
  - HEADACHE [None]
  - HEART RATE INCREASED [None]
  - HYPOVENTILATION [None]
  - INSOMNIA [None]
  - PAIN [None]
  - PAIN IN EXTREMITY [None]
  - PNEUMONIA [None]
  - SCAR [None]
